FAERS Safety Report 5522194-7 (Version None)
Quarter: 2007Q4

REPORT INFORMATION
  Report Type: 
  Country: None (occurrence: None)
  Receive Date: 20071120
  Receipt Date: 20071115
  Transmission Date: 20080405
  Serious: Yes (Hospitalization, Other)
  Sender: FDA-Public Use
  Company Number: B0440391A

PATIENT
  Age: 41 Year
  Sex: Male

DRUGS (8)
  1. RETROVIR [Suspect]
     Indication: ACQUIRED IMMUNODEFICIENCY SYNDROME
     Dosage: 400MG PER DAY
     Route: 048
     Dates: start: 20051226, end: 20060124
  2. EPIVIR [Suspect]
     Indication: ACQUIRED IMMUNODEFICIENCY SYNDROME
     Dosage: 300MG PER DAY
     Route: 048
     Dates: start: 20051226
  3. LEXIVA [Suspect]
     Indication: ACQUIRED IMMUNODEFICIENCY SYNDROME
     Dosage: 1400MG TWICE PER DAY
     Route: 048
     Dates: start: 20051226
  4. ZERIT [Suspect]
     Indication: ACQUIRED IMMUNODEFICIENCY SYNDROME
     Dosage: 60MG PER DAY
     Route: 048
     Dates: start: 20060125
  5. VALGANCICLOVIR HCL [Suspect]
     Indication: CYTOMEGALOVIRUS CHORIORETINITIS
     Route: 048
     Dates: start: 20060119, end: 20060308
  6. DIFLUCAN [Concomitant]
     Indication: ORAL CANDIDIASIS
     Dosage: 100MG PER DAY
     Route: 065
     Dates: start: 20051226, end: 20060111
  7. BACTRIM [Concomitant]
     Indication: PNEUMOCYSTIS JIROVECI PNEUMONIA
     Dosage: 480MG PER DAY
     Route: 048
     Dates: start: 20060105
  8. BICILLIN [Concomitant]
     Indication: SYPHILIS
     Dosage: 400IU3 THREE TIMES PER DAY
     Route: 048
     Dates: start: 20051208, end: 20060104

REACTIONS (5)
  - BONE MARROW FAILURE [None]
  - IMMUNE RECONSTITUTION SYNDROME [None]
  - MYCOBACTERIUM AVIUM COMPLEX INFECTION [None]
  - PANCYTOPENIA [None]
  - PYREXIA [None]
